FAERS Safety Report 5561877-X (Version None)
Quarter: 2007Q4

REPORT INFORMATION
  Report Type: 
  Country: None (occurrence: None)
  Receive Date: 20071215
  Receipt Date: 20071005
  Transmission Date: 20080405
  Serious: No
  Sender: FDA-Public Use
  Company Number: US-AMGEN-KDL246828

PATIENT
  Sex: Male

DRUGS (5)
  1. ENBREL [Suspect]
     Indication: RHEUMATOID ARTHRITIS
     Route: 058
     Dates: start: 20050301, end: 20070101
  2. ENBREL [Suspect]
     Indication: JUVENILE ARTHRITIS
  3. ENBREL [Suspect]
     Indication: ANKYLOSING SPONDYLITIS
  4. ENBREL [Suspect]
     Indication: BEHCET'S SYNDROME
  5. METHOTREXATE [Concomitant]
     Route: 048
     Dates: start: 20041201

REACTIONS (4)
  - ASTHENIA [None]
  - FATIGUE [None]
  - NAUSEA [None]
  - THERAPEUTIC RESPONSE DECREASED [None]
